FAERS Safety Report 5508544-6 (Version None)
Quarter: 2007Q4

REPORT INFORMATION
  Report Type: 
  Country: None (occurrence: None)
  Receive Date: 20071031
  Receipt Date: 20070706
  Transmission Date: 20080405
  Serious: No
  Sender: FDA-Public Use
  Company Number: 2007PV033118

PATIENT
  Age: 52 Year
  Sex: Female

DRUGS (4)
  1. SYMLIN [Suspect]
     Indication: TYPE 1 DIABETES MELLITUS
     Dosage: 30 MCG;TID;SC ; 15 MCG;TID;SC
     Route: 058
     Dates: start: 20070703, end: 20070704
  2. SYMLIN [Suspect]
     Indication: TYPE 1 DIABETES MELLITUS
     Dosage: 30 MCG;TID;SC ; 15 MCG;TID;SC
     Route: 058
     Dates: start: 20070705
  3. NOVOLOG [Concomitant]
  4. LANTUS [Concomitant]

REACTIONS (3)
  - CONFUSIONAL STATE [None]
  - DRUG EFFECT DECREASED [None]
  - HUNGER [None]
